FAERS Safety Report 9246636 (Version 1)
Quarter: 2013Q2

REPORT INFORMATION
  Report Type: Spontaneous
  Country: US (occurrence: US)
  Receive Date: 20130422
  Receipt Date: 20130422
  Transmission Date: 20140414
  Serious: Yes (Other)
  Sender: FDA-Public Use
  Company Number: US-GILEAD-2013-0073838

PATIENT
  Age: 54 Year
  Sex: Male

DRUGS (1)
  1. VIREAD [Suspect]
     Indication: HIV INFECTION

REACTIONS (2)
  - Renal tubular acidosis [Not Recovered/Not Resolved]
  - Fanconi syndrome acquired [Not Recovered/Not Resolved]
